FAERS Safety Report 15827254 (Version 1)
Quarter: 2019Q1

REPORT INFORMATION
  Report Type: Spontaneous
  Country: DE (occurrence: US)
  Receive Date: 20190115
  Receipt Date: 20190115
  Transmission Date: 20190417
  Serious: No
  Sender: FDA-Public Use
  Company Number: DE-ANIPHARMA-2018-US-003880

PATIENT
  Sex: Male

DRUGS (1)
  1. FLUVOXAMINE (NON-SPECIFIC) [Suspect]
     Active Substance: FLUVOXAMINE
     Indication: PRODUCT USED FOR UNKNOWN INDICATION
     Dosage: 150 MG, FREQUENCY: BID; 200 MG, FREQUENCY: BID
     Route: 048

REACTIONS (2)
  - Insomnia [Unknown]
  - Tremor [Unknown]
